FAERS Safety Report 7986061-1 (Version None)
Quarter: 2011Q4

REPORT INFORMATION
  Report Type: 
  Country: None (occurrence: None)
  Receive Date: 20111216
  Receipt Date: 20110112
  Transmission Date: 20120403
  Serious: No
  Sender: FDA-Public Use
  Company Number: US-BRISTOL-MYERS SQUIBB COMPANY-15483225

PATIENT
  Age: 35 Year
  Sex: Female

DRUGS (3)
  1. ABILIFY [Suspect]
     Dosage: USED FOR WEEK AND A HALF.
  2. MULTI-VITAMIN [Concomitant]
  3. LEXAPRO [Concomitant]

REACTIONS (3)
  - DYSPNOEA [None]
  - FEELING JITTERY [None]
  - PALPITATIONS [None]
